FAERS Safety Report 13229274 (Version 1)
Quarter: 2017Q1

REPORT INFORMATION
  Report Type: Spontaneous
  Country: US (occurrence: US)
  Receive Date: 20170214
  Receipt Date: 20170214
  Transmission Date: 20170428
  Serious: Yes (Other)
  Sender: FDA-Public Use
  Company Number: US-ROCHE-1787788

PATIENT
  Sex: Male
  Weight: 69.01 kg

DRUGS (3)
  1. XELODA [Suspect]
     Active Substance: CAPECITABINE
     Dosage: FOR TWO WEEKS ON AND ONE WEEK OFF
     Route: 048
     Dates: start: 2016, end: 2016
  2. XELODA [Suspect]
     Active Substance: CAPECITABINE
     Indication: COLON CANCER
     Dosage: FOR TWO WEEKS THEN A REST PERIOD
     Route: 048
     Dates: start: 2016, end: 201605
  3. XELODA [Suspect]
     Active Substance: CAPECITABINE
     Indication: COLORECTAL CANCER
     Dosage: FOR TWO WEEKS THEN A REST PERIOD
     Route: 048
     Dates: start: 2016, end: 201605

REACTIONS (26)
  - Cardiac disorder [Unknown]
  - Gait disturbance [Unknown]
  - Peripheral swelling [Unknown]
  - Hypertension [Recovered/Resolved]
  - Memory impairment [Not Recovered/Not Resolved]
  - Burning sensation [Not Recovered/Not Resolved]
  - Onychalgia [Not Recovered/Not Resolved]
  - Chest pain [Unknown]
  - Paraesthesia [Unknown]
  - Skin wrinkling [Unknown]
  - Paraesthesia [Not Recovered/Not Resolved]
  - Swelling [Not Recovered/Not Resolved]
  - Temperature intolerance [Unknown]
  - Neuropathy peripheral [Unknown]
  - Pain [Unknown]
  - Dysgeusia [Recovered/Resolved]
  - Temperature intolerance [Recovered/Resolved]
  - Peripheral swelling [Not Recovered/Not Resolved]
  - Wound infection [Not Recovered/Not Resolved]
  - Blood creatinine abnormal [Unknown]
  - Hypoaesthesia [Not Recovered/Not Resolved]
  - Pain in extremity [Not Recovered/Not Resolved]
  - Palmar-plantar erythrodysaesthesia syndrome [Unknown]
  - Pain in jaw [Recovered/Resolved]
  - Tension [Unknown]
  - Ill-defined disorder [Unknown]
